FAERS Safety Report 5047993-X (Version None)
Quarter: 2006Q3

REPORT INFORMATION
  Report Type: 
  Country: None (occurrence: None)
  Receive Date: 20060710
  Receipt Date: 20060710
  Transmission Date: 20061208
  Serious: No
  Sender: FDA-Public Use
  Company Number: None

PATIENT
  Age: 50 Year
  Sex: Male

DRUGS (2)
  1. REMICADE [Suspect]
     Indication: ANKYLOSING SPONDYLITIS
     Dosage: COUPLE OF YEARS
  2. METHOTREXATE [Suspect]
     Dosage: PO
     Route: 048

REACTIONS (1)
  - TONSIL CANCER [None]
